FAERS Safety Report 11705753 (Version 3)
Quarter: 2015Q4

REPORT INFORMATION
  Report Type: Spontaneous
  Country: FI (occurrence: FI)
  Receive Date: 20151106
  Receipt Date: 20151130
  Transmission Date: 20160304
  Serious: Yes (Death, Hospitalization, Disabling, Other)
  Sender: FDA-Public Use
  Company Number: PHHY2015FI142899

PATIENT
  Age: 82 Year
  Sex: Female

DRUGS (60)
  1. ZOMETA [Suspect]
     Active Substance: ZOLEDRONIC ACID
     Indication: PLASMA CELL MYELOMA
     Dosage: 4 MG, UNK
     Route: 042
     Dates: start: 20121023, end: 20121023
  2. VENLAFAXINE [Concomitant]
     Active Substance: VENLAFAXINE HYDROCHLORIDE
     Indication: DEPRESSION
     Dosage: 37.5 MG, QD (1 TO 2 DEPOT, QD)
     Route: 065
     Dates: start: 20130414, end: 20140516
  3. VENLAFAXIN BLUEFISH [Concomitant]
     Active Substance: VENLAFAXINE HYDROCHLORIDE
     Indication: DEPRESSION
     Dosage: 1 DF, QD (1 DEPOT)
     Route: 065
     Dates: start: 20150107, end: 20150608
  4. PREDNISOLON [Concomitant]
     Active Substance: PREDNISOLONE
     Indication: SYNOVITIS
     Dosage: 40 MG, UNK
     Route: 065
     Dates: start: 20130509, end: 20130828
  5. PREDNISOLON [Concomitant]
     Active Substance: PREDNISOLONE
     Indication: HYPERCALCAEMIA
     Dosage: 7.5 MG, QOD (1.5 TAB EVERY SECOND DAY)
     Route: 065
     Dates: start: 20130731, end: 20130828
  6. KLEXANE [Concomitant]
     Active Substance: ENOXAPARIN
     Indication: VENOUS THROMBOSIS
     Dosage: 40 MG, QD
     Route: 058
     Dates: start: 20121023, end: 20121210
  7. TEMESTA [Concomitant]
     Active Substance: LORAZEPAM
     Dosage: 0.5-1 TABLET 1-2 TIMES PER DAY
     Route: 065
     Dates: start: 20141028
  8. ZINACEF [Concomitant]
     Active Substance: CEFUROXIME SODIUM
     Dosage: 750 MG, TID
     Route: 042
     Dates: start: 20150719, end: 20150724
  9. FLAGYL [Concomitant]
     Active Substance: METRONIDAZOLE\METRONIDAZOLE HYDROCHLORIDE
     Indication: VAGINAL INFECTION
     Dosage: 1 DF, TID
     Route: 048
     Dates: start: 20150715, end: 20150720
  10. KEFEXIN [Concomitant]
     Active Substance: CEPHALEXIN
     Indication: PRODUCT USED FOR UNKNOWN INDICATION
     Dosage: 1 DF, BID
     Route: 048
     Dates: start: 20150724, end: 20150802
  11. OMEPRAZOL TEVA//OMEPRAZOLE [Concomitant]
     Indication: ABDOMINAL DISCOMFORT
     Dosage: 1 DF, QD
     Route: 048
     Dates: start: 20130114, end: 20130115
  12. PEGORION [Concomitant]
     Dosage: 12 G, QD (0.5 TO 1 SACHETS)
     Route: 048
     Dates: start: 20150510
  13. VELCADE [Concomitant]
     Active Substance: BORTEZOMIB
     Indication: PLASMA CELL MYELOMA
     Dosage: 2.1 MG, QD
     Route: 065
     Dates: start: 20130114, end: 20130114
  14. MATRIFEN [Concomitant]
     Active Substance: FENTANYL
     Indication: PAIN
     Dosage: 25 UG, UNK
     Route: 062
     Dates: start: 20140519, end: 20140523
  15. ZINACEF [Concomitant]
     Active Substance: CEFUROXIME SODIUM
     Indication: INFECTION
     Dosage: 1.5 MG, ONCE/SINGLE
     Route: 042
     Dates: start: 20150719, end: 20150719
  16. TENOX (TEMAZEPAM) [Concomitant]
     Indication: INSOMNIA
     Dosage: 1 DF, QD
     Route: 065
     Dates: start: 20141114
  17. VENLAFAXINE [Concomitant]
     Active Substance: VENLAFAXINE HYDROCHLORIDE
     Dosage: 150 MG, QD (1 DEPOT)
     Route: 065
     Dates: start: 20150827
  18. LAMICTAL [Concomitant]
     Active Substance: LAMOTRIGINE
     Indication: BIPOLAR DISORDER
     Dosage: 25 MG, UNK
     Route: 065
     Dates: start: 20150123, end: 20150312
  19. LAMICTAL [Concomitant]
     Active Substance: LAMOTRIGINE
     Dosage: 100 MG, QD (1 TAB)
     Route: 065
     Dates: start: 20150312
  20. FUCIDIN                                 /SCH/ [Concomitant]
     Indication: PRODUCT USED FOR UNKNOWN INDICATION
     Dosage: UNK
     Route: 065
     Dates: start: 20130731, end: 20130807
  21. MATRIFEN [Concomitant]
     Active Substance: FENTANYL
     Dosage: 25 UG, UNK
     Route: 062
     Dates: start: 20140606, end: 20140730
  22. OMEPRAZOL-RATIOPHARM [Concomitant]
     Indication: ABDOMINAL DISCOMFORT
     Dosage: 1 DF, QD
     Route: 048
     Dates: start: 20130318
  23. PREDNISOLON [Concomitant]
     Active Substance: PREDNISOLONE
     Dosage: 30 MG, QD (20 MG)
     Route: 065
     Dates: start: 20150718, end: 20150723
  24. PARA-TABS [Concomitant]
     Active Substance: ACETAMINOPHEN
     Dosage: 1 G, TID (0.5 TAB)
     Route: 048
     Dates: start: 20150724, end: 20150827
  25. KLEXANE [Concomitant]
     Active Substance: ENOXAPARIN
     Dosage: 40 MG, QD
     Route: 058
     Dates: start: 20150504, end: 20150616
  26. PRIMPERAN [Concomitant]
     Active Substance: METOCLOPRAMIDE HYDROCHLORIDE
     Indication: NAUSEA
     Dosage: WHEN NEEDED 1 TABLET 1TO 3 TIMES A DAY
     Route: 065
     Dates: start: 20130319
  27. PANACOD [Concomitant]
     Active Substance: ACETAMINOPHEN\CODEINE PHOSPHATE
     Indication: PAIN
     Dosage: 1 DF, QD WHEN NEEDED
     Route: 048
     Dates: start: 20150702
  28. DEXAMETASON [Concomitant]
     Active Substance: DEXAMETHASONE
     Indication: PLASMA CELL MYELOMA
     Dosage: 13 DF, QD
     Route: 048
     Dates: start: 20130114, end: 20130115
  29. NEOPROCT [Concomitant]
     Indication: HAEMORRHOIDS
     Dosage: 1 DF, BID
     Route: 054
     Dates: start: 20150730, end: 20150805
  30. PAUSANOL [Concomitant]
     Indication: PRODUCT USED FOR UNKNOWN INDICATION
     Dosage: 1 DF, QD
     Route: 067
     Dates: start: 20150720, end: 20150805
  31. ZOMETA [Suspect]
     Active Substance: ZOLEDRONIC ACID
     Dosage: 3 MG, UNK
     Route: 042
     Dates: start: 20140827, end: 20150827
  32. CITALOPRAM ORION [Concomitant]
     Active Substance: CITALOPRAM HYDROBROMIDE
     Indication: DEPRESSION
     Dosage: 1 TO 2 TABLETS, QD
     Route: 065
     Dates: start: 20130314, end: 20130326
  33. PREDNISOLON [Concomitant]
     Active Substance: PREDNISOLONE
     Dosage: 20 MG, QD
     Route: 065
     Dates: start: 20150723
  34. PANADOL FORTE [Concomitant]
     Active Substance: ACETAMINOPHEN\CAFFEINE
     Indication: ARTHRALGIA
     Dosage: 1 DF, BID
     Route: 048
     Dates: start: 20131120
  35. KLEXANE [Concomitant]
     Active Substance: ENOXAPARIN
     Indication: VENOUS THROMBOSIS
     Dosage: 40 MG, QD
     Route: 058
     Dates: start: 20140521, end: 20140702
  36. REVLIMID [Concomitant]
     Active Substance: LENALIDOMIDE
     Indication: PLASMA CELL MYELOMA
     Dosage: 1 DF, QD
     Route: 065
     Dates: start: 20121024, end: 20121113
  37. TRAMAL [Concomitant]
     Active Substance: TRAMADOL
     Indication: PAIN
     Dosage: 1 DF, BID
     Route: 065
     Dates: start: 20140516, end: 20140519
  38. PEGORION [Concomitant]
     Indication: CONSTIPATION
     Dosage: 12 G, QD (1 SACHET DOSE)
     Dates: start: 20120102, end: 20150417
  39. PARA-TABS [Concomitant]
     Active Substance: ACETAMINOPHEN
     Indication: PAIN
     Dosage: 1 TO 2 TAB, TID
     Route: 048
     Dates: start: 20110826, end: 20140702
  40. ACICLOVIR HEXAL [Concomitant]
     Indication: HERPES ZOSTER
     Dosage: 1 DF, BID
     Route: 048
     Dates: start: 20121210, end: 20130123
  41. CALCICHEW-D3 FORTE [Concomitant]
     Active Substance: CALCIUM\CHOLECALCIFEROL
     Indication: BONE DISORDER
     Dosage: 1 DF, BID (500MG CALCIUM AND 10 UG CHOLECALCIFEROL)
     Route: 048
     Dates: start: 20120509, end: 20130814
  42. CALCICHEW-D3 FORTE [Concomitant]
     Active Substance: CALCIUM\CHOLECALCIFEROL
     Dosage: 1 DF, QD  (500MG CALCIUM AND 10 UG CHOLECALCIFEROL)
     Route: 048
     Dates: start: 20140827, end: 20140905
  43. MATRIFEN [Concomitant]
     Active Substance: FENTANYL
     Dosage: 50 UG, UNK
     Route: 062
     Dates: start: 20140523, end: 20140702
  44. LITO [Concomitant]
     Indication: PRODUCT USED FOR UNKNOWN INDICATION
     Dosage: 1 DF, QD
     Route: 048
     Dates: start: 20130409, end: 20140702
  45. CANESTEN [Concomitant]
     Active Substance: CLOTRIMAZOLE
     Indication: VULVITIS
     Dosage: UNK
     Route: 065
     Dates: start: 20150210, end: 20150212
  46. TAMIFLU [Concomitant]
     Active Substance: OSELTAMIVIR PHOSPHATE
     Indication: INFLUENZA
     Dosage: 1 DF, BID
     Route: 065
     Dates: start: 20150223, end: 20150227
  47. VENLAFAXINE [Concomitant]
     Active Substance: VENLAFAXINE HYDROCHLORIDE
     Dosage: 37.5 MG, QD (3 DEPOT)
     Route: 065
     Dates: start: 20141107, end: 20150107
  48. PREDNISOLON [Concomitant]
     Active Substance: PREDNISOLONE
     Indication: PLASMA CELL MYELOMA
     Dosage: 5 MG, UNK
     Route: 065
     Dates: start: 20130417, end: 20130508
  49. KLEXANE [Concomitant]
     Active Substance: ENOXAPARIN
     Dosage: 40 MG, BID
     Route: 058
     Dates: start: 20140702, end: 20140703
  50. OXYNORM [Concomitant]
     Active Substance: OXYCODONE HYDROCHLORIDE
     Indication: PAIN
     Dosage: WHEN NEEDED 1 CAPSULE 1-3 TIMES PER DAY
     Route: 048
     Dates: start: 20140521
  51. PREVNAR 13 [Concomitant]
     Active Substance: PNEUMOCOCCAL 13-VALENT CONJUGATE VACCINE
     Indication: PNEUMOCOCCAL IMMUNISATION
     Dosage: UNK UNK, ONCE/SINGLE
     Route: 030
     Dates: start: 20121116, end: 20121116
  52. SYKLOFOSFAMID [Concomitant]
     Indication: PLASMA CELL MYELOMA
     Dosage: UNK
     Route: 065
     Dates: start: 20130509, end: 20130731
  53. DEXPANTENOL [Concomitant]
     Indication: PRODUCT USED FOR UNKNOWN INDICATION
     Dosage: UNK UNK, BID
     Route: 065
     Dates: start: 20150213, end: 20150217
  54. PREDNISON [Concomitant]
     Active Substance: PREDNISONE
     Indication: PRODUCT USED FOR UNKNOWN INDICATION
     Route: 048
     Dates: start: 20130815, end: 20130828
  55. VENLAFAXINE [Concomitant]
     Active Substance: VENLAFAXINE HYDROCHLORIDE
     Dosage: 150 MG, QD (75 MG X 2 DEPOT)
     Route: 065
     Dates: start: 20150608, end: 20150827
  56. SEROQUEL [Concomitant]
     Active Substance: QUETIAPINE FUMARATE
     Indication: MOOD ALTERED
     Dosage: 2 DF, QD
     Route: 065
     Dates: start: 20150107
  57. KLEXANE [Concomitant]
     Active Substance: ENOXAPARIN
     Dosage: 20 MG, QD
     Route: 058
     Dates: start: 20150616
  58. MATRIFEN [Concomitant]
     Active Substance: FENTANYL
     Dosage: 12 UG, UNK
     Route: 062
     Dates: start: 20140606, end: 20150819
  59. MATRIFEN [Concomitant]
     Active Substance: FENTANYL
     Dosage: 25 UG, UNK
     Route: 062
     Dates: start: 20140924, end: 20150819
  60. TEMESTA [Concomitant]
     Active Substance: LORAZEPAM
     Indication: ANXIETY
     Dosage: 0.5-1 TABLET 1-3 TIMES PER DAY
     Route: 065
     Dates: start: 20130326, end: 20140702

REACTIONS (27)
  - Gingivitis [Not Recovered/Not Resolved]
  - Oral disorder [Not Recovered/Not Resolved]
  - Influenza [Unknown]
  - Mucous membrane disorder [Not Recovered/Not Resolved]
  - Mass [Not Recovered/Not Resolved]
  - Candida infection [Unknown]
  - Depression [Unknown]
  - Exposed bone in jaw [Not Recovered/Not Resolved]
  - Tongue ulceration [Not Recovered/Not Resolved]
  - Tongue disorder [Not Recovered/Not Resolved]
  - Infection [Unknown]
  - Venous thrombosis [Unknown]
  - Haemorrhoids [Unknown]
  - General physical health deterioration [Unknown]
  - Vaginal infection [Unknown]
  - Arthralgia [Unknown]
  - Nausea [Unknown]
  - Pain [Unknown]
  - Death [Fatal]
  - Synovitis [Unknown]
  - Insomnia [Unknown]
  - Vulvitis [Unknown]
  - Osteonecrosis of jaw [Not Recovered/Not Resolved]
  - Mouth ulceration [Not Recovered/Not Resolved]
  - Oral pain [Not Recovered/Not Resolved]
  - Anxiety [Unknown]
  - Dry mouth [Not Recovered/Not Resolved]

NARRATIVE: CASE EVENT DATE: 2015
